FAERS Safety Report 7376496-2 (Version None)
Quarter: 2011Q1

REPORT INFORMATION
  Report Type: 
  Country: None (occurrence: None)
  Receive Date: 20110317
  Receipt Date: 20110304
  Transmission Date: 20110831
  Serious: No
  Sender: FDA-Public Use
  Company Number: 2011-00086

PATIENT
  Age: 57 Year
  Sex: Female
  Weight: 82.5547 kg

DRUGS (2)
  1. ZYRTEC [Concomitant]
  2. ZICAM EXTREME CONGESTION RELIEF [Suspect]
     Dosage: 2 DAYS
     Dates: start: 20110303, end: 20110304

REACTIONS (2)
  - AGEUSIA [None]
  - ANOSMIA [None]
